FAERS Safety Report 15538446 (Version 3)
Quarter: 2018Q4

REPORT INFORMATION
  Report Type: Other
  Country: US (occurrence: US)
  Receive Date: 20181022
  Receipt Date: 20181121
  Transmission Date: 20190205
  Serious: Yes (Death, Other)
  Sender: FDA-Public Use
  Company Number: US-ACORDA-ACO_154943_2018

PATIENT
  Sex: Male

DRUGS (2)
  1. TECFIDERA [Suspect]
     Active Substance: DIMETHYL FUMARATE
     Indication: MULTIPLE SCLEROSIS
     Dosage: 240 MILLIGRAM, BID
     Route: 048
     Dates: start: 20160311, end: 20180815
  2. AMPYRA [Suspect]
     Active Substance: DALFAMPRIDINE
     Indication: MULTIPLE SCLEROSIS
     Dosage: 10 MILLIGRAM, Q 12 HRS
     Route: 065
     Dates: start: 20151117

REACTIONS (1)
  - Lung neoplasm malignant [Fatal]
